FAERS Safety Report 6125798-6 (Version None)
Quarter: 2009Q1

REPORT INFORMATION
  Report Type: 
  Country: None (occurrence: None)
  Receive Date: 20090319
  Receipt Date: 20090319
  Transmission Date: 20090719
  Serious: No
  Sender: FDA-Public Use
  Company Number: None

PATIENT
  Age: 11 Year
  Sex: Female
  Weight: 41.7309 kg

DRUGS (1)
  1. TAMIFLU [Suspect]
     Indication: INFLUENZA IMMUNISATION
     Dosage: 1 TSP TWICE A DAY PO
     Route: 048
     Dates: start: 20090227, end: 20090303

REACTIONS (7)
  - ABDOMINAL PAIN UPPER [None]
  - CHOKING SENSATION [None]
  - FATIGUE [None]
  - FEAR [None]
  - HALLUCINATION, AUDITORY [None]
  - HYPERVENTILATION [None]
  - PYREXIA [None]
